FAERS Safety Report 20567802 (Version 1)
Quarter: 2022Q1

REPORT INFORMATION
  Report Type: Spontaneous
  Country: HU (occurrence: HU)
  Receive Date: 20220308
  Receipt Date: 20220308
  Transmission Date: 20220423
  Serious: Yes (Other)
  Sender: FDA-Public Use
  Company Number: HU-002147023-NVSC2022HU017090

PATIENT
  Age: 67 Year
  Sex: Female

DRUGS (5)
  1. LETROZOLE [Suspect]
     Active Substance: LETROZOLE
     Indication: Product used for unknown indication
     Dosage: 2.5 MILLIGRAM
     Route: 065
  2. LETROZOLE [Suspect]
     Active Substance: LETROZOLE
     Dosage: 2.5 MILLIGRAM
     Route: 065
     Dates: start: 2021
  3. RIBOCICLIB [Suspect]
     Active Substance: RIBOCICLIB
     Indication: Product used for unknown indication
     Dosage: UNK (3 TABLETS OF 200 MG) (1X, CONTINUOUS FOR 3 WEEKS FOLLOWED BY A 1 WEEK BREAK)
     Route: 065
     Dates: start: 2021
  4. RIBOCICLIB [Suspect]
     Active Substance: RIBOCICLIB
     Dosage: UNK (3 TABLETS OF 200 MG) (1X, CONTINUOUS FOR 3 WEEKS FOLLOWED BY A 1 WEEK BREAK)
     Route: 065
  5. ZOLEDRONIC ACID [Concomitant]
     Active Substance: ZOLEDRONIC ACID
     Indication: Product used for unknown indication
     Dosage: UNK, Q4W
     Route: 065

REACTIONS (2)
  - Neutropenia [Unknown]
  - Remission not achieved [Unknown]

NARRATIVE: CASE EVENT DATE: 20210707
